FAERS Safety Report 12897155 (Version 1)
Quarter: 2016Q4

REPORT INFORMATION
  Report Type: Spontaneous
  Country: US (occurrence: US)
  Receive Date: 20161031
  Receipt Date: 20161031
  Transmission Date: 20170207
  Serious: Yes (Hospitalization, Other)
  Sender: FDA-Public Use
  Company Number: US-ENDO PHARMACEUTICALS INC.-2016-004246

PATIENT
  Sex: Male
  Weight: 90.21 kg

DRUGS (21)
  1. FENTANYL. [Concomitant]
     Active Substance: FENTANYL
     Indication: HEADACHE
     Route: 062
  2. ASPIRIN. [Concomitant]
     Active Substance: ASPIRIN
     Indication: CARDIAC DISORDER
     Dosage: 81 MG AT NIGHT
     Route: 048
  3. BIOTIN [Concomitant]
     Active Substance: BIOTIN
     Indication: HAIR DISORDER
     Dosage: 5000 MCG 2 PILLS IN THE MORNING
     Route: 048
  4. IBUPROFEN TABLETS 200MG [Concomitant]
     Indication: PAIN
     Dosage: 200MG TWO TABLETS
     Route: 048
  5. AMLODIPINE BESYLATE TABLETS 10MG [Concomitant]
     Active Substance: AMLODIPINE BESYLATE
     Indication: BLOOD PRESSURE MEASUREMENT
     Dosage: 1/2 A 10MG IN THE MORNING
     Route: 065
  6. BENZTROPINE MESYLATE TABLETS 0.5MG [Concomitant]
     Active Substance: BENZTROPINE MESYLATE
     Indication: SEIZURE
     Dosage: 0.5 MG TABLETS IN THE MORNING AND AROUND 6 P.M
     Route: 048
  7. HYDROCODONE BITARTRATE AND ACETAMINOPHEN [Concomitant]
     Active Substance: ACETAMINOPHEN\HYDROCODONE BITARTRATE
     Indication: NECK PAIN
  8. KEPPRA [Concomitant]
     Active Substance: LEVETIRACETAM
     Indication: SEIZURE
     Route: 048
  9. PRAVASTATIN. [Concomitant]
     Active Substance: PRAVASTATIN
     Indication: BLOOD CHOLESTEROL
     Dosage: 80MG AT 6 P.M
     Route: 048
  10. VITAMINE D [Concomitant]
     Indication: VITAMIN D DEFICIENCY
     Dosage: 3 TABLET FIRST THING IN THE MORNING
     Route: 048
  11. FENTANYL. [Concomitant]
     Active Substance: FENTANYL
     Indication: NECK PAIN
  12. OSTEO BI-FLEX [Concomitant]
     Active Substance: CHONDROITIN SULFATE A\GLUCOSAMINE
     Indication: ARTHRALGIA
     Dosage: 1500/1250MG, 2 IN THE MORNING AND ONE ABOUT 6 P.M
     Route: 065
  13. METFORMIN HYDROCHLORIDE TABLETS 1000MG [Concomitant]
     Active Substance: METFORMIN HYDROCHLORIDE
     Indication: DIABETES MELLITUS
     Dosage: 1000MG 1/2 AT 6 A.M AND 1/2 AT 6 P.M
     Route: 048
  14. ACETAMINOPHEN #2 [Concomitant]
     Indication: HEADACHE
     Dosage: 500 MG NOT TO EXCEED 4GRAM PER DAY
     Route: 048
  15. MORPHINE SULFATE ER [Suspect]
     Active Substance: MORPHINE SULFATE
     Indication: PRODUCT USED FOR UNKNOWN INDICATION
     Route: 065
  16. LYRICA [Concomitant]
     Active Substance: PREGABALIN
     Indication: NERVE INJURY
     Dosage: ONE 75MG AT 6 A.M, AT 2 P.M AND THEN 2 75MG AT 10 P.M
     Route: 065
     Dates: start: 1999
  17. BACLOFEN. [Concomitant]
     Active Substance: BACLOFEN
     Indication: NECK PAIN
     Route: 048
  18. MOBIC [Concomitant]
     Active Substance: MELOXICAM
     Indication: PAIN
     Route: 048
  19. ZOLPIDEM [Concomitant]
     Active Substance: ZOLPIDEM\ZOLPIDEM TARTRATE
     Indication: INSOMNIA
     Dosage: 5MG PRIOR TO BEDTIME NIGHTLY AND SOMETIMES TAKES AS NEEDED
     Route: 048
  20. HYDROCODONE BITARTRATE AND ACETAMINOPHEN [Concomitant]
     Active Substance: ACETAMINOPHEN\HYDROCODONE BITARTRATE
     Indication: HEADACHE
     Dosage: 10/325 MG NIGHTLY AT 10 P.M.
     Route: 048
  21. DIAZEPAM. [Concomitant]
     Active Substance: DIAZEPAM
     Indication: HEADACHE
     Dosage: 2.5 MG IN THE MORNING, 5MG AT 6 P.M OR 10 P.M BUT NOT BOTH 6 P.M AND 10 P.M
     Route: 065

REACTIONS (1)
  - Breakthrough pain [Unknown]
